FAERS Safety Report 9732592 (Version 2)
Quarter: 2014Q1

REPORT INFORMATION
  Report Type: Spontaneous
  Country: US (occurrence: US)
  Receive Date: 20131204
  Receipt Date: 20140314
  Transmission Date: 20141002
  Serious: Yes (Other)
  Sender: FDA-Public Use
  Company Number: US-BAYER-2013-147205

PATIENT
  Age: 20 Year
  Sex: Female

DRUGS (3)
  1. YAZ [Suspect]
     Dosage: UNK
     Dates: start: 200801, end: 200812
  2. PHENAZOPYRIDINE [Concomitant]
     Indication: BLADDER SPASM
     Dosage: 200 MG, TAKE 1 TABLET EVERY 6 HOURS
     Route: 048
  3. NAPROSYN [Concomitant]
     Dosage: UNK

REACTIONS (1)
  - Thrombophlebitis superficial [None]
